FAERS Safety Report 21048591 (Version 2)
Quarter: 2022Q3

REPORT INFORMATION
  Report Type: Spontaneous
  Country: US (occurrence: US)
  Receive Date: 20220706
  Receipt Date: 20220707
  Transmission Date: 20221027
  Serious: No
  Sender: FDA-Public Use
  Company Number: US-PFIZER INC-202200920281

PATIENT
  Age: 32 Year
  Sex: Female
  Weight: 96.16 kg

DRUGS (1)
  1. PAXLOVID [Suspect]
     Active Substance: NIRMATRELVIR\RITONAVIR
     Indication: COVID-19 treatment
     Dosage: 3 DF, 2X/DAY (MORNING DOSE OF 3 TABLETS/EVENING DOSE OF 3 TABLETS TAKEN AT THE SAME TIME)
     Route: 048
     Dates: start: 20220630

REACTIONS (18)
  - Tremor [Unknown]
  - Taste disorder [Not Recovered/Not Resolved]
  - Ageusia [Not Recovered/Not Resolved]
  - Anosmia [Not Recovered/Not Resolved]
  - Nausea [Unknown]
  - Insomnia [Unknown]
  - Illness [Unknown]
  - Abdominal discomfort [Unknown]
  - Muscle tightness [Unknown]
  - Nasal congestion [Unknown]
  - Cough [Unknown]
  - Dry mouth [Unknown]
  - Paraesthesia [Unknown]
  - Burning sensation [Unknown]
  - Diarrhoea [Not Recovered/Not Resolved]
  - Pyrexia [Recovered/Resolved]
  - Feeling hot [Unknown]
  - Flushing [Unknown]

NARRATIVE: CASE EVENT DATE: 20220101
